FAERS Safety Report 12987216 (Version 1)
Quarter: 2016Q4

REPORT INFORMATION
  Report Type: Spontaneous
  Country: US (occurrence: US)
  Receive Date: 20161130
  Receipt Date: 20161130
  Transmission Date: 20170207
  Serious: No
  Sender: FDA-Public Use
  Company Number: US-ASTRAZENECA-2016SF16486

PATIENT
  Age: 71 Year
  Sex: Female
  Weight: 119.3 kg

DRUGS (12)
  1. SEROQUEL XR [Suspect]
     Active Substance: QUETIAPINE FUMARATE
     Indication: BIPOLAR DISORDER
     Route: 048
     Dates: end: 20161026
  2. SEROQUEL XR [Suspect]
     Active Substance: QUETIAPINE FUMARATE
     Indication: BIPOLAR DISORDER
     Dosage: 50.0MG UNKNOWN
     Route: 048
     Dates: start: 20161026, end: 20161101
  3. OMEGA 3 [Concomitant]
     Active Substance: OMEGA-3 FATTY ACIDS
     Indication: DEPRESSION
     Route: 048
     Dates: start: 20161015
  4. SEROQUEL XR [Suspect]
     Active Substance: QUETIAPINE FUMARATE
     Indication: BIPOLAR DISORDER
     Dosage: 100.0MG UNKNOWN
     Route: 048
     Dates: start: 20161101, end: 20161101
  5. INSULIN/HUMULIN U [Concomitant]
     Indication: DIABETES MELLITUS
     Route: 058
     Dates: start: 2011
  6. ASPIRIN. [Concomitant]
     Active Substance: ASPIRIN
     Indication: PROPHYLAXIS
     Route: 048
     Dates: start: 2010
  7. EFFEXOR [Concomitant]
     Active Substance: VENLAFAXINE HYDROCHLORIDE
  8. SEROQUEL XR [Suspect]
     Active Substance: QUETIAPINE FUMARATE
     Indication: BIPOLAR DISORDER
     Route: 048
     Dates: start: 20161014
  9. COREEG [Concomitant]
     Indication: CARDIAC DISORDER
     Route: 048
     Dates: start: 2010
  10. NEXIUM [Suspect]
     Active Substance: ESOMEPRAZOLE MAGNESIUM
     Indication: GASTROOESOPHAGEAL REFLUX DISEASE
     Route: 048
     Dates: start: 2011
  11. AGELESS BODY [Concomitant]
     Route: 048
     Dates: start: 201610
  12. LIPITOR [Concomitant]
     Active Substance: ATORVASTATIN CALCIUM
     Indication: PROPHYLAXIS
     Route: 048
     Dates: start: 2010

REACTIONS (13)
  - Dry mouth [Unknown]
  - Sinus headache [Unknown]
  - Depression [Unknown]
  - Headache [Unknown]
  - Sedation [Unknown]
  - Irritability [Unknown]
  - Abdominal pain [Unknown]
  - Enzyme abnormality [Unknown]
  - Abdominal pain upper [Unknown]
  - Gross motor delay [Unknown]
  - Speech disorder [Unknown]
  - Constipation [Unknown]
  - Malaise [Unknown]

NARRATIVE: CASE EVENT DATE: 201608
